FAERS Safety Report 17922150 (Version 1)
Quarter: 2020Q2

REPORT INFORMATION
  Report Type: Spontaneous
  Country: US (occurrence: US)
  Receive Date: 20200619
  Receipt Date: 20200619
  Transmission Date: 20200714
  Serious: Yes (Disabling)
  Sender: FDA-Public Use
  Company Number: None

PATIENT
  Age: 66 Year
  Sex: Male
  Weight: 157.5 kg

DRUGS (13)
  1. PRADAXA [Concomitant]
     Active Substance: DABIGATRAN ETEXILATE MESYLATE
  2. VITAMIN B12 [Concomitant]
     Active Substance: CYANOCOBALAMIN
  3. PREDNISONE. [Concomitant]
     Active Substance: PREDNISONE
  4. ZINC. [Concomitant]
     Active Substance: ZINC
  5. D-3 [Concomitant]
     Active Substance: CHOLECALCIFEROL
  6. VITAMIN C [Concomitant]
     Active Substance: ASCORBIC ACID
  7. SPIRIVA [Concomitant]
     Active Substance: TIOTROPIUM BROMIDE MONOHYDRATE
  8. FENTANYL TRANSDERMAL SYSTEM [Suspect]
     Active Substance: FENTANYL
     Indication: PAIN
     Dosage: ?          QUANTITY:4 PATCH(ES);OTHER FREQUENCY:EVERY 48 HOURS;?
     Route: 062
     Dates: start: 20200609, end: 20200610
  9. BILE SALTS [Concomitant]
  10. TESTOSTERONE. [Concomitant]
     Active Substance: TESTOSTERONE
  11. MAGNESIUM [Concomitant]
     Active Substance: MAGNESIUM
  12. METOPROLOL. [Concomitant]
     Active Substance: METOPROLOL
  13. TAMSULOSIN [Concomitant]
     Active Substance: TAMSULOSIN

REACTIONS (2)
  - Product substitution issue [None]
  - Back pain [None]

NARRATIVE: CASE EVENT DATE: 20200615
